FAERS Safety Report 10195020 (Version 1)
Quarter: 2014Q2

REPORT INFORMATION
  Report Type: Spontaneous
  Country: JP (occurrence: JP)
  Receive Date: 20140526
  Receipt Date: 20140526
  Transmission Date: 20141212
  Serious: Yes (Other)
  Sender: FDA-Public Use
  Company Number: PHHY2014JP061783

PATIENT
  Age: 51 Year
  Sex: Female

DRUGS (2)
  1. ZOMETA [Suspect]
     Indication: BREAST CANCER
     Dosage: UNK UKN, UNK
     Route: 041
     Dates: start: 201101
  2. FEMARA [Suspect]
     Dosage: UNK UKN, UNK
     Route: 048

REACTIONS (3)
  - Bone lesion [Unknown]
  - Osteosclerosis [Unknown]
  - Tumour marker increased [Unknown]
